FAERS Safety Report 11644980 (Version 1)
Quarter: 2015Q4

REPORT INFORMATION
  Report Type: Report from Study
  Country: IN (occurrence: IN)
  Receive Date: 20151020
  Receipt Date: 20151020
  Transmission Date: 20160304
  Serious: Yes (Other)
  Sender: FDA-Public Use
  Company Number: IN-B.I. PHARMACEUTICALS,INC./RIDGEFIELD-2015-BI-56769BI

PATIENT
  Age: 6 Week
  Sex: Female
  Weight: 2.9 kg

DRUGS (1)
  1. VIRAMUNE [Suspect]
     Active Substance: NEVIRAPINE
     Indication: HIV INFECTION
     Dosage: DOSE: 2 MG/KG
     Route: 065

REACTIONS (1)
  - Polymerase chain reaction positive [Unknown]
